FAERS Safety Report 16994038 (Version 1)
Quarter: 2019Q4

REPORT INFORMATION
  Report Type: Spontaneous
  Country: US (occurrence: US)
  Receive Date: 20190924
  Receipt Date: 20190924
  Transmission Date: 20200122
  Serious: No
  Sender: FDA-Public Use
  Company Number: None

PATIENT
  Age: 63 Year

DRUGS (1)
  1. IMATINIB 400MG TAB (X30) [Suspect]
     Active Substance: IMATINIB
     Route: 048
     Dates: start: 201908

REACTIONS (8)
  - Asthenia [None]
  - Abdominal distension [None]
  - Abdominal pain upper [None]
  - Weight decreased [None]
  - Vomiting [None]
  - Dyspnoea [None]
  - Nausea [None]
  - Wheezing [None]

NARRATIVE: CASE EVENT DATE: 20190924
